FAERS Safety Report 9431307 (Version 1)
Quarter: 2013Q3

REPORT INFORMATION
  Report Type: Spontaneous
  Country: JP (occurrence: JP)
  Receive Date: 20130730
  Receipt Date: 20130730
  Transmission Date: 20140515
  Serious: Yes (Other)
  Sender: FDA-Public Use
  Company Number: JP-009507513-1307JPN016413

PATIENT
  Age: 42 Year
  Sex: Male

DRUGS (1)
  1. CANCIDAS FOR INTRAVENOUS DRIP INFUSION 50MG [Suspect]
     Dosage: IV DRIP
     Route: 042

REACTIONS (2)
  - Sepsis [Unknown]
  - Blood bilirubin increased [Unknown]
